FAERS Safety Report 9400022 (Version 1)
Quarter: 2013Q3

REPORT INFORMATION
  Report Type: Spontaneous
  Country: FR (occurrence: FR)
  Receive Date: 20130715
  Receipt Date: 20130715
  Transmission Date: 20140515
  Serious: Yes (Hospitalization)
  Sender: FDA-Public Use
  Company Number: FR-PFIZER INC-2013201056

PATIENT
  Age: 36 Year
  Sex: Male
  Weight: 62 kg

DRUGS (3)
  1. VFEND [Suspect]
     Indication: SPONDYLITIS
     Dosage: 267 MG, 3X/DAY
     Route: 048
  2. CANCIDAS [Suspect]
     Indication: SPONDYLITIS
     Dosage: 800 MG, 1X/DAY
     Route: 048
     Dates: start: 2005
  3. EFUDIX [Suspect]
     Indication: ACTINIC KERATOSIS
     Dosage: 5 DF, WEEKLY
     Route: 003
     Dates: start: 2011

REACTIONS (1)
  - Salivary gland neoplasm [Not Recovered/Not Resolved]
